FAERS Safety Report 23206683 (Version 1)
Quarter: 2023Q4

REPORT INFORMATION
  Report Type: Spontaneous
  Country: US (occurrence: US)
  Receive Date: 20231120
  Receipt Date: 20231120
  Transmission Date: 20240109
  Serious: No
  Sender: FDA-Public Use
  Company Number: US-BRISTOL-MYERS SQUIBB COMPANY-2023-166901

PATIENT
  Age: 64 Year
  Sex: Female
  Weight: 55.61 kg

DRUGS (1)
  1. REVLIMID [Suspect]
     Active Substance: LENALIDOMIDE
     Indication: Follicular lymphoma
     Dosage: FREQUENCY-3W, 1W OFF
     Route: 048
     Dates: start: 20220929

REACTIONS (1)
  - Upper respiratory tract infection [Unknown]
